FAERS Safety Report 7071945-1 (Version None)
Quarter: 2010Q4

REPORT INFORMATION
  Report Type: 
  Country: None (occurrence: None)
  Receive Date: 20101029
  Receipt Date: 20091116
  Transmission Date: 20110411
  Serious: No
  Sender: FDA-Public Use
  Company Number: A0815816A

PATIENT
  Age: 69 Year
  Sex: Female

DRUGS (20)
  1. ADVAIR DISKUS 100/50 [Suspect]
     Indication: EMPHYSEMA
     Dosage: 1PUFF TWICE PER DAY
     Route: 055
     Dates: start: 20091106
  2. ALLEGRA [Concomitant]
  3. ALTACE [Concomitant]
  4. AMARYL [Concomitant]
  5. COREG [Concomitant]
  6. HYDROCHLOROTHIAZIDE [Concomitant]
  7. KLOR-CON [Concomitant]
  8. NEXIUM [Concomitant]
  9. REGLAN [Concomitant]
  10. VYTORIN [Concomitant]
  11. SYNTHROID [Concomitant]
  12. XANAX [Concomitant]
  13. ZOLOFT [Concomitant]
  14. HYDROMET (SYRUP) [Concomitant]
  15. UNSPECIFIED MEDICATION [Concomitant]
  16. DURAGESIC-100 [Concomitant]
  17. CALTRATE [Concomitant]
  18. ASCORBIC ACID [Concomitant]
  19. IRON [Concomitant]
  20. COUGH MEDICINE [Concomitant]

REACTIONS (2)
  - COUGH [None]
  - DIZZINESS [None]
